FAERS Safety Report 7521620-1 (Version None)
Quarter: 2011Q2

REPORT INFORMATION
  Report Type: 
  Country: None (occurrence: None)
  Receive Date: 20110603
  Receipt Date: 20110103
  Transmission Date: 20111010
  Serious: Yes (Hospitalization)
  Sender: FDA-Public Use
  Company Number: US-BAYER-201033352NA

PATIENT
  Age: 21 Year
  Sex: Female
  Weight: 58.957 kg

DRUGS (7)
  1. SODIUM CHLORIDE [Concomitant]
     Dosage: 1 UNK, UNK
     Dates: start: 20030531
  2. YASMIN [Suspect]
     Indication: MENSTRUAL CYCLE MANAGEMENT
     Dosage: UNK UNK, UNK
     Route: 065
     Dates: start: 20010101, end: 20010101
  3. DEPO-PROVERA [Concomitant]
     Indication: CONTRACEPTION
     Dosage: UNK
     Dates: start: 20030101
  4. YASMIN [Suspect]
     Indication: DYSMENORRHOEA
  5. COMPAZINE [Concomitant]
     Indication: GALLBLADDER DISORDER
     Dosage: UNK
     Dates: start: 20030101
  6. TORADOL [Concomitant]
     Indication: PAIN
     Dosage: 30 MG, UNK
     Dates: start: 20030531
  7. ALBUTEROL SULFATE AUTOHALER [Concomitant]
     Indication: ASTHMA

REACTIONS (5)
  - CHOLECYSTITIS [None]
  - MOOD SWINGS [None]
  - WEIGHT INCREASED [None]
  - CHOLELITHIASIS [None]
  - GALLBLADDER CHOLESTEROLOSIS [None]
